FAERS Safety Report 4290589-8 (Version None)
Quarter: 2004Q1

REPORT INFORMATION
  Report Type: 
  Country: None (occurrence: None)
  Receive Date: 20040209
  Receipt Date: 20040128
  Transmission Date: 20041129
  Serious: Yes (Congenital Anomaly)
  Sender: FDA-Public Use
  Company Number: 2004AP00185

PATIENT
  Age: 0 Day
  Sex: Male

DRUGS (1)
  1. PULMICORT [Suspect]
     Dosage: 200 UG BID TPL
     Route: 061
     Dates: start: 20030516

REACTIONS (5)
  - CONGENITAL VENTRICULAR SEPTAL DEFECT [None]
  - CYANOSIS NEONATAL [None]
  - DOUBLE OUTLET RIGHT VENTRICLE [None]
  - DRUG EXPOSURE DURING PREGNANCY [None]
  - INTERRUPTION OF AORTIC ARCH [None]
